FAERS Safety Report 9359848 (Version 2)
Quarter: 2013Q3

REPORT INFORMATION
  Report Type: Spontaneous
  Country: BR (occurrence: BR)
  Receive Date: 20130621
  Receipt Date: 20130712
  Transmission Date: 20140515
  Serious: Yes (Other)
  Sender: FDA-Public Use
  Company Number: BR-AMGEN-BRASP2013039039

PATIENT
  Age: 72 Year
  Sex: Female
  Weight: 62.7 kg

DRUGS (1)
  1. VECTIBIX [Suspect]
     Indication: COLON NEOPLASM
     Dosage: 376,2MG DAILY
     Route: 042

REACTIONS (12)
  - Skin exfoliation [Recovered/Resolved with Sequelae]
  - Hyperaemia [Recovered/Resolved with Sequelae]
  - Tremor [Recovered/Resolved with Sequelae]
  - Pruritus [Recovered/Resolved with Sequelae]
  - Petechiae [Recovered/Resolved with Sequelae]
  - Lacrimation increased [Recovered/Resolved with Sequelae]
  - Eye irritation [Recovered/Resolved with Sequelae]
  - Rhinitis [Recovered/Resolved with Sequelae]
  - Pain [Recovered/Resolved with Sequelae]
  - Rash erythematous [Unknown]
  - Blister [Unknown]
  - Skin lesion [Unknown]
